FAERS Safety Report 4893296-3 (Version None)
Quarter: 2006Q1

REPORT INFORMATION
  Report Type: 
  Country: None (occurrence: None)
  Receive Date: 20060124
  Receipt Date: 20060112
  Transmission Date: 20060701
  Serious: Yes (Other)
  Sender: FDA-Public Use
  Company Number: 2005151429

PATIENT
  Age: 11 Year
  Sex: Male

DRUGS (3)
  1. GENOTROPIN [Suspect]
     Indication: HYPOPITUITARISM
     Dosage: 0.7 MG (0.7 MG, DAILY); 1.2 MG (1.2 MG, DAILY)
     Dates: start: 20021108, end: 20041224
  2. GENOTROPIN [Suspect]
     Indication: HYPOPITUITARISM
     Dosage: 0.7 MG (0.7 MG, DAILY); 1.2 MG (1.2 MG, DAILY)
     Dates: start: 20050225
  3. LEVOTHYROXINE SODIUM [Concomitant]

REACTIONS (7)
  - ARNOLD-CHIARI MALFORMATION [None]
  - CEREBELLAR SYNDROME [None]
  - COORDINATION ABNORMAL [None]
  - DIZZINESS [None]
  - INTENTION TREMOR [None]
  - MULTIPLE SYSTEM ATROPHY [None]
  - MUSCLE TWITCHING [None]
